FAERS Safety Report 5635198-0 (Version None)
Quarter: 2008Q1

REPORT INFORMATION
  Report Type: 
  Country: None (occurrence: None)
  Receive Date: 20080222
  Receipt Date: 20080220
  Transmission Date: 20080703
  Serious: Yes (Life-Threatening, Hospitalization)
  Sender: FDA-Public Use
  Company Number: US-BOEHRINGER INGELHEIM GMBH, GERMANY-2008-BP-00126BP

PATIENT
  Age: 60 Year
  Sex: Male

DRUGS (3)
  1. ZANTAC 150 [Suspect]
     Route: 048
     Dates: start: 20071008, end: 20071104
  2. FLOMAX [Concomitant]
  3. CLONIDINE [Concomitant]

REACTIONS (2)
  - ANAPHYLACTIC REACTION [None]
  - ANAPHYLACTIC SHOCK [None]
